FAERS Safety Report 4829033-8 (Version None)
Quarter: 2005Q4

REPORT INFORMATION
  Report Type: 
  Country: None (occurrence: None)
  Receive Date: 20051027
  Receipt Date: 20050824
  Transmission Date: 20060501
  Serious: Yes (Other)
  Sender: FDA-Public Use
  Company Number: 200516338US

PATIENT
  Age: 56 Year
  Sex: Female

DRUGS (2)
  1. LEFLUNOMIDE [Suspect]
     Dosage: 20 MG
     Dates: start: 20040524
  2. ENBREL [Suspect]
     Indication: RHEUMATOID ARTHRITIS
     Dosage: 25 MG 2XW SC
     Route: 058
     Dates: start: 20011001

REACTIONS (1)
  - HERPES ZOSTER [None]
